FAERS Safety Report 22926031 (Version 2)
Quarter: 2023Q4

REPORT INFORMATION
  Report Type: Spontaneous
  Country: ES (occurrence: ES)
  Receive Date: 20230909
  Receipt Date: 20231024
  Transmission Date: 20240110
  Serious: Yes (Other)
  Sender: FDA-Public Use
  Company Number: ES-SA-SAC20220308000537

PATIENT
  Sex: Female
  Weight: 45.6 kg

DRUGS (4)
  1. INSULIN HUMAN [Suspect]
     Active Substance: INSULIN HUMAN
     Indication: Type 2 diabetes mellitus
     Dosage: 3, 5, 4 UNITS
     Route: 058
  2. INSULIN GLARGINE [Suspect]
     Active Substance: INSULIN GLARGINE
     Indication: Type 2 diabetes mellitus
     Dosage: 11 INTERNATIONAL UNIT, UNKNOWN
     Route: 058
     Dates: start: 202111
  3. INSULIN GLARGINE [Suspect]
     Active Substance: INSULIN GLARGINE
     Dosage: 13 IU, QD
     Route: 058
     Dates: start: 202111
  4. INSULIN GLARGINE [Suspect]
     Active Substance: INSULIN GLARGINE
     Dosage: 13 IU, QD
     Route: 058
     Dates: start: 202111

REACTIONS (24)
  - Tremor [Recovering/Resolving]
  - Dizziness [Recovering/Resolving]
  - Peripheral artery occlusion [Not Recovered/Not Resolved]
  - Discomfort [Recovering/Resolving]
  - Tachycardia [Recovering/Resolving]
  - Blood glucose decreased [Recovering/Resolving]
  - Dizziness [Recovered/Resolved]
  - Vision blurred [Recovered/Resolved]
  - Hyperglycaemia [Recovered/Resolved]
  - Limb discomfort [Recovered/Resolved]
  - Haematoma [Unknown]
  - Nasopharyngitis [Unknown]
  - Hyperglycaemia [Unknown]
  - Food craving [Unknown]
  - Gait disturbance [Not Recovered/Not Resolved]
  - Tooth loss [Unknown]
  - Blood glucose increased [Unknown]
  - Joint swelling [Unknown]
  - Venous occlusion [Unknown]
  - Muscle tone disorder [Not Recovered/Not Resolved]
  - Pain in extremity [Unknown]
  - Illness [Unknown]
  - Malaise [Unknown]
  - Fatigue [Unknown]

NARRATIVE: CASE EVENT DATE: 20230101
